FAERS Safety Report 9366308 (Version 1)
Quarter: 2013Q2

REPORT INFORMATION
  Report Type: Spontaneous
  Country: AT (occurrence: AT)
  Receive Date: 20130625
  Receipt Date: 20130625
  Transmission Date: 20140414
  Serious: Yes (Death, Other)
  Sender: FDA-Public Use
  Company Number: AT-JNJFOC-20130610140

PATIENT
  Sex: 0

DRUGS (3)
  1. ABCIXIMAB [Suspect]
     Indication: ACUTE MYOCARDIAL INFARCTION
     Route: 042
  2. EPTIFIBATIDE [Suspect]
     Indication: ACUTE MYOCARDIAL INFARCTION
     Route: 065
  3. TIROFIBAN [Suspect]
     Indication: ACUTE MYOCARDIAL INFARCTION
     Route: 065

REACTIONS (5)
  - Death [Fatal]
  - Haemorrhagic stroke [Unknown]
  - Haemorrhage [Unknown]
  - Ischaemic stroke [Unknown]
  - Cerebrovascular accident [Unknown]
